FAERS Safety Report 8139610-7 (Version None)
Quarter: 2012Q1

REPORT INFORMATION
  Report Type: 
  Country: None (occurrence: None)
  Receive Date: 20120215
  Receipt Date: 20120203
  Transmission Date: 20120608
  Serious: Yes (Hospitalization)
  Sender: FDA-Public Use
  Company Number: PHEH2011US008610

PATIENT
  Sex: Male

DRUGS (2)
  1. GLEEVEC [Suspect]
     Dosage: 400 MG, QD
     Route: 048
     Dates: start: 20111101
  2. GLEEVEC [Suspect]
     Indication: CHRONIC MYELOID LEUKAEMIA
     Dosage: 400 MG DAILY
     Route: 048
     Dates: start: 20111007, end: 20111025

REACTIONS (13)
  - FALL [None]
  - BLOOD URINE PRESENT [None]
  - DIZZINESS [None]
  - URINARY TRACT INFECTION [None]
  - NAUSEA [None]
  - ARTHRALGIA [None]
  - ABDOMINAL PAIN UPPER [None]
  - MUSCLE SPASMS [None]
  - SWELLING [None]
  - BONE PAIN [None]
  - LACRIMATION INCREASED [None]
  - HYPOTENSION [None]
  - MYALGIA [None]
